FAERS Safety Report 9356687 (Version 3)
Quarter: 2013Q4

REPORT INFORMATION
  Report Type: Spontaneous
  Country: US (occurrence: US)
  Receive Date: 20130619
  Receipt Date: 20131009
  Transmission Date: 20140711
  Serious: Yes (Other)
  Sender: FDA-Public Use
  Company Number: US-009507513-1306USA007119

PATIENT
  Sex: Female

DRUGS (11)
  1. DEXAMETHASONE [Concomitant]
     Indication: PREMEDICATION
     Dosage: 10 MG, QAM, FOR 2 DAYS
  2. DEXAMETHASONE [Concomitant]
     Dosage: 8 MG, UNK
  3. DEXAMETHASONE [Concomitant]
     Dosage: 10 MG, UNK
  4. ONDANSETRON HYDROCHLORIDE [Concomitant]
     Indication: NAUSEA
  5. ONDANSETRON HYDROCHLORIDE [Concomitant]
     Indication: VOMITING
  6. EMEND [Suspect]
     Indication: PROPHYLAXIS OF NAUSEA AND VOMITING
     Dosage: 125 MG, UNK
  7. EMEND [Interacting]
     Dosage: 80 MG, QAM FOR 2 DAYS
  8. IFOSFAMIDE [Interacting]
     Dosage: 1.5 G/M2
  9. IFOSFAMIDE [Interacting]
     Dosage: 1 G/M2 OVER 90 MINUTES
  10. CISPLATIN [Concomitant]
     Dosage: 20 MG/M2, UNK
  11. MESNA [Concomitant]
     Dosage: ON DAYS 1 -4

REACTIONS (2)
  - Coma [Recovered/Resolved]
  - Drug interaction [Recovered/Resolved]
